FAERS Safety Report 7052010-6 (Version None)
Quarter: 2010Q4

REPORT INFORMATION
  Report Type: 
  Country: None (occurrence: None)
  Receive Date: 20101019
  Receipt Date: 20101012
  Transmission Date: 20110411
  Serious: Yes (Other)
  Sender: FDA-Public Use
  Company Number: US-US-EMD SERONO, INC.-7021706

PATIENT
  Sex: Female

DRUGS (2)
  1. REBIF [Suspect]
     Indication: MULTIPLE SCLEROSIS
     Route: 058
     Dates: start: 20100407, end: 20100802
  2. REBIF [Suspect]
     Route: 058
     Dates: start: 20100920

REACTIONS (4)
  - HEPATIC ENZYME INCREASED [None]
  - MALAISE [None]
  - PAIN [None]
  - PRECANCEROUS SKIN LESION [None]
